FAERS Safety Report 8956115 (Version 1)
Quarter: 2012Q4

REPORT INFORMATION
  Report Type: 
  Country: US (occurrence: US)
  Receive Date: 20121210
  Receipt Date: 20121210
  Transmission Date: 20130627
  Serious: No
  Sender: FDA-Public Use
  Company Number: US-009507513-1212USA002800

PATIENT
  Age: 33 Year
  Sex: Female

DRUGS (2)
  1. TEMODAR [Suspect]
     Indication: GLIOBLASTOMA MULTIFORME
     Route: 048
  2. AVASTIN (ATORVASTATIN CALCIUM) [Concomitant]

REACTIONS (3)
  - Colitis [Unknown]
  - Malnutrition [Unknown]
  - Diarrhoea [Unknown]
